FAERS Safety Report 11364286 (Version 1)
Quarter: 2015Q3

REPORT INFORMATION
  Report Type: Spontaneous
  Country: NL (occurrence: NL)
  Receive Date: 20150811
  Receipt Date: 20150811
  Transmission Date: 20151125
  Serious: Yes (Life-Threatening, Hospitalization)
  Sender: FDA-Public Use
  Company Number: NL-JNJFOC-20150806193

PATIENT
  Age: 6 Decade
  Sex: Male

DRUGS (2)
  1. ALL OTHER THERAPEUTIC AGENTS [Concomitant]
     Active Substance: UNSPECIFIED INGREDIENT
  2. IMBRUVICA [Suspect]
     Active Substance: IBRUTINIB
     Indication: MANTLE CELL LYMPHOMA
     Route: 048

REACTIONS (2)
  - Respiratory failure [Unknown]
  - Coma [Unknown]

NARRATIVE: CASE EVENT DATE: 20150807
